FAERS Safety Report 15164968 (Version 1)
Quarter: 2018Q3

REPORT INFORMATION
  Report Type: Spontaneous
  Country: FR (occurrence: US)
  Receive Date: 20180719
  Receipt Date: 20180719
  Transmission Date: 20181010
  Serious: Yes (Other)
  Sender: FDA-Public Use
  Company Number: FR-ALKEM LABORATORIES LIMITED-US-ALKEM-2018-03237

PATIENT
  Age: 28 Year
  Sex: Male

DRUGS (5)
  1. SEROMYCIN (CYCLOSERINE?, PFIZER) [Concomitant]
     Indication: PULMONARY TUBERCULOSIS
     Dosage: 250 MG, QD
     Route: 065
  2. MOXIFLOXACIN (IZILOX?, BAYER SANTE) [Concomitant]
     Indication: PULMONARY TUBERCULOSIS
     Dosage: 400 MG, QD
     Route: 065
  3. LINEZOLID. [Suspect]
     Active Substance: LINEZOLID
     Indication: PULMONARY TUBERCULOSIS
     Dosage: 600 MG, QD
     Route: 065
  4. PARA?AMINOSALICYLIC ACID (PASER?, LUCANE PHARMA) [Concomitant]
     Indication: PULMONARY TUBERCULOSIS
     Dosage: 8 G, QD
     Route: 065
  5. ZYVOXID?, PFIZER [Suspect]
     Active Substance: LINEZOLID
     Indication: PULMONARY TUBERCULOSIS
     Dosage: 600 MG, QD
     Route: 065

REACTIONS (2)
  - Toxic optic neuropathy [Recovering/Resolving]
  - Neuropathy peripheral [None]
